FAERS Safety Report 25324824 (Version 1)
Quarter: 2025Q2

REPORT INFORMATION
  Report Type: Spontaneous
  Country: TW (occurrence: TW)
  Receive Date: 20250516
  Receipt Date: 20250516
  Transmission Date: 20250716
  Serious: Yes (Other)
  Sender: SANOFI AVENTIS
  Company Number: TW-SA-2025SA137936

PATIENT
  Age: 76 Year
  Sex: Female
  Weight: 57.5 kg

DRUGS (8)
  1. TOUJEO [Suspect]
     Active Substance: INSULIN GLARGINE
     Indication: Diabetes mellitus
     Dosage: 20 IU, QD
     Route: 058
  2. VANCOMYCIN [Suspect]
     Active Substance: VANCOMYCIN
     Indication: Intervertebral discitis
     Dosage: 500MG, EVERY 12 HOURS
     Route: 041
     Dates: end: 20250404
  3. METRONIDAZOLE [Concomitant]
     Active Substance: METRONIDAZOLE
     Indication: Meningitis
     Dosage: 500MG, EVERY 6 HOUR
     Route: 041
  4. TATUMCEF [Concomitant]
     Indication: Intervertebral discitis
     Dosage: 200MG, EVERY 8 HOURS
     Route: 042
  5. DIOVAN [Concomitant]
     Active Substance: VALSARTAN
     Indication: Hypertension
     Dosage: 1 TAB, DAILY
     Route: 048
  6. NORVASC [Concomitant]
     Active Substance: AMLODIPINE BESYLATE
     Indication: Hypertension
     Dosage: 1 DF (5 MG), DAILY
     Route: 048
  7. SEROQUEL [Concomitant]
     Active Substance: QUETIAPINE FUMARATE
     Indication: Delirium
     Dosage: 1 TABLET, DAILY
     Route: 048
  8. MUACTION [Concomitant]
     Indication: Pain
     Dosage: 1 DF, BID
     Route: 048

REACTIONS (5)
  - Vancomycin infusion reaction [Recovered/Resolved]
  - Eosinophilia [Recovered/Resolved]
  - Rash erythematous [Recovering/Resolving]
  - Rash [Recovered/Resolved]
  - Urticaria [Unknown]

NARRATIVE: CASE EVENT DATE: 20250330
